FAERS Safety Report 22001695 (Version 3)
Quarter: 2023Q4

REPORT INFORMATION
  Report Type: Spontaneous
  Country: TR (occurrence: US)
  Receive Date: 20230216
  Receipt Date: 20231005
  Transmission Date: 20240110
  Serious: Yes (Hospitalization, Other)
  Sender: FDA-Public Use
  Company Number: TR-VERTEX PHARMACEUTICALS-2023-002347

PATIENT
  Age: 15 Year
  Sex: Female

DRUGS (3)
  1. TRIKAFTA [Suspect]
     Active Substance: ELEXACAFTOR\IVACAFTOR\TEZACAFTOR
     Indication: Cystic fibrosis
     Dosage: 2  TABS AM; 1 TAB PM
     Route: 048
     Dates: start: 202001, end: 202002
  2. TRIKAFTA [Suspect]
     Active Substance: ELEXACAFTOR\IVACAFTOR\TEZACAFTOR
     Dosage: INTERCHANGED THE MORNING AND EVENING DOSES
     Route: 048
     Dates: start: 202003, end: 2020
  3. TRIKAFTA [Suspect]
     Active Substance: ELEXACAFTOR\IVACAFTOR\TEZACAFTOR
     Dosage: 1 TAB AM; 1 TAB PM
     Route: 048
     Dates: start: 202107, end: 2021

REACTIONS (11)
  - Suicide attempt [Recovering/Resolving]
  - Suicidal ideation [Recovered/Resolved]
  - Vomiting [Unknown]
  - Dysphoria [Recovering/Resolving]
  - Sleep disorder [Recovering/Resolving]
  - Feeling abnormal [Unknown]
  - Anxiety [Unknown]
  - Social avoidant behaviour [Unknown]
  - Depression [Recovering/Resolving]
  - Abdominal pain [Unknown]
  - Abdominal discomfort [Unknown]

NARRATIVE: CASE EVENT DATE: 20200101
